FAERS Safety Report 8225449-0 (Version None)
Quarter: 2012Q1

REPORT INFORMATION
  Report Type: 
  Country: None (occurrence: None)
  Receive Date: 20120321
  Receipt Date: 20120314
  Transmission Date: 20120608
  Serious: Yes (Hospitalization)
  Sender: FDA-Public Use
  Company Number: PT-ABBOTT-12P-130-0915794-00

PATIENT
  Age: 53 Year
  Sex: Male

DRUGS (8)
  1. IPRATROPIUM BROMIDE AND ALBUTEROL SULFATE [Concomitant]
     Indication: LEGIONELLA INFECTION
     Dosage: NEBULIZATION: 0.52 MG + 3 MG TID
     Route: 050
  2. CLARITHROMYCIN [Suspect]
     Indication: RESPIRATORY TRACT INFECTION
  3. IPRATROPIUM BROMIDE AND ALBUTEROL SULFATE [Concomitant]
     Indication: LOWER RESPIRATORY TRACT INFECTION
  4. CLARITHROMYCIN [Suspect]
     Indication: LEGIONELLA INFECTION
     Route: 048
  5. HYDROXYZINE [Concomitant]
     Indication: LEGIONELLA INFECTION
     Route: 048
  6. CEFOTAXIME [Concomitant]
     Indication: LEGIONELLA INFECTION
     Route: 042
  7. CEFOTAXIME [Concomitant]
     Indication: LOWER RESPIRATORY TRACT INFECTION
  8. HYDROXYZINE [Concomitant]
     Indication: LOWER RESPIRATORY TRACT INFECTION

REACTIONS (2)
  - MANIA [None]
  - MOOD ALTERED [None]
